FAERS Safety Report 23458306 (Version 1)
Quarter: 2024Q1

REPORT INFORMATION
  Report Type: Spontaneous
  Country: US (occurrence: US)
  Receive Date: 20240130
  Receipt Date: 20240130
  Transmission Date: 20240409
  Serious: No
  Sender: FDA-Public Use
  Company Number: US-RVL_Pharmaceuticals-USA-POI1255202300274

PATIENT
  Sex: Female

DRUGS (1)
  1. UPNEEQ [Suspect]
     Active Substance: OXYMETAZOLINE HYDROCHLORIDE
     Indication: Product used for unknown indication
     Dosage: UNKNOWN
     Route: 047
     Dates: start: 20220213, end: 20220213

REACTIONS (4)
  - Dizziness [Unknown]
  - Nausea [Unknown]
  - Eye irritation [Unknown]
  - Photophobia [Unknown]

NARRATIVE: CASE EVENT DATE: 20220213
